FAERS Safety Report 8527755 (Version 6)
Quarter: 2013Q4

REPORT INFORMATION
  Report Type: Spontaneous
  Country: US (occurrence: None)
  Receive Date: 20120405
  Receipt Date: 20131216
  Transmission Date: 20140711
  Serious: Yes (Hospitalization, Other)
  Sender: FDA-Public Use
  Company Number: ADR-2012-00677

PATIENT
  Sex: Female

DRUGS (2)
  1. BACLOFEN [Suspect]
     Indication: MUSCLE SPASTICITY
  2. BACLOFEN [Suspect]
     Indication: MUSCLE SPASTICITY

REACTIONS (14)
  - Therapeutic response decreased [None]
  - Movement disorder [None]
  - Post procedural complication [None]
  - Activities of daily living impaired [None]
  - Frustration [None]
  - Weight decreased [None]
  - Device extrusion [None]
  - Implant site erythema [None]
  - Mobility decreased [None]
  - Muscle spasticity [None]
  - Anger [None]
  - Muscle spasticity [None]
  - Drug administration error [None]
  - Foot operation [None]
